FAERS Safety Report 7672077-1 (Version None)
Quarter: 2011Q3

REPORT INFORMATION
  Report Type: 
  Country: None (occurrence: None)
  Receive Date: 20110809
  Receipt Date: 20110801
  Transmission Date: 20111222
  Serious: Yes (Other)
  Sender: FDA-Public Use
  Company Number: PHHY2011JP65756

PATIENT
  Age: 67 Year
  Sex: Female

DRUGS (7)
  1. VITANEURIN [Concomitant]
     Dosage: 100 MG,
     Route: 048
     Dates: start: 20080621
  2. ZOMETA [Suspect]
     Indication: METASTASES TO BONE
     Dosage: 4 MG, (MONTHLY)
     Route: 041
     Dates: start: 20070101
  3. ZOMETA [Suspect]
     Dosage: UNK
     Route: 041
     Dates: start: 20080311, end: 20110621
  4. TEPRENONE [Concomitant]
     Dosage: 150 MG,
     Route: 048
     Dates: start: 20080621
  5. LIPOZART [Concomitant]
     Dosage: 5 MG,
     Route: 048
     Dates: start: 20080621
  6. MAGNESIUM SULFATE [Concomitant]
     Dosage: 150 MG
     Route: 048
     Dates: start: 20080621
  7. OXYCONTIN [Concomitant]
     Indication: CANCER PAIN
     Dosage: 80 MG,
     Route: 048
     Dates: start: 20080621

REACTIONS (1)
  - OSTEOMYELITIS [None]
